FAERS Safety Report 8985948 (Version 1)
Quarter: 2012Q4

REPORT INFORMATION
  Report Type: 
  Country: DK (occurrence: DK)
  Receive Date: 20121226
  Receipt Date: 20121226
  Transmission Date: 20130627
  Serious: Yes (Other)
  Sender: FDA-Public Use
  Company Number: DK-PFIZER INC-2012323006

PATIENT
  Age: 53 Year
  Sex: Male

DRUGS (9)
  1. GABAPENTIN [Suspect]
     Indication: EPILEPSY
     Dosage: 400 mg, 2+1+1+1, daily
     Dates: start: 20020411
  2. GABAPENTIN [Suspect]
     Dosage: 3600mg, daily
  3. DELEPSINE [Suspect]
     Indication: EPILEPSY
     Dosage: 100 mg, daily
     Dates: start: 200302
  4. TRILEPTAL [Suspect]
     Indication: EPILEPSY
     Dosage: Tapering
  5. DELEPSINE RETARD [Suspect]
     Indication: EPILEPSY
     Dosage: 1500 mg, daily
  6. LAMICTAL [Suspect]
     Indication: EPILEPSY
     Dosage: UNK
     Dates: start: 20060829
  7. SIMVASTATIN [Concomitant]
     Dosage: 40 mg, UNK
  8. ATACAND [Concomitant]
     Dosage: 12 mg, UNK
  9. HJERTEMAGNYL ^DAK^ [Concomitant]
     Dosage: 75 mg, UNK

REACTIONS (3)
  - Petit mal epilepsy [Not Recovered/Not Resolved]
  - Memory impairment [Not Recovered/Not Resolved]
  - Erectile dysfunction [Not Recovered/Not Resolved]
